FAERS Safety Report 8613977 (Version 3)
Quarter: 2012Q4

REPORT INFORMATION
  Report Type: Report from Study
  Country: GB (occurrence: None)
  Receive Date: 20120531
  Receipt Date: 20120913
  Transmission Date: 20130627
  Serious: Yes (Hospitalization)
  Sender: FDA-Public Use
  Company Number: AG-2012-0292

PATIENT
  Age: 76 Year
  Sex: Male

DRUGS (11)
  1. CHLORAMBUCIL [Suspect]
     Indication: CHRONIC LYMPHOCYTIC LEUKAEMIA
     Route: 048
     Dates: start: 20120323
  2. OFATUMUMAB [Suspect]
     Indication: CHRONIC LYMPHOCYTIC LEUKAEMIA
     Route: 042
     Dates: start: 20120321
  3. PREDNISOLONE [Suspect]
     Indication: DRUG USE FOR UNKNOWN INDICATION
     Route: 048
     Dates: start: 20120423, end: 20120425
  4. BENDAMUSTINE (BENDAMUSTINE) (BENDAMUSTINE) [Concomitant]
  5. ACETAMINOPHEN [Concomitant]
  6. CHLORPHENIRAMINE MALEATE [Concomitant]
  7. ALLOPURINOL [Concomitant]
  8. METOCLOPRAMIDE [Concomitant]
  9. ACYCLOVIR [Concomitant]
  10. G-CSF (G-CSF) [Concomitant]
  11. RANITIDINE HYDROCHLORIDE [Concomitant]

REACTIONS (3)
  - Pyrexia [None]
  - Malaise [None]
  - Infection [None]
